FAERS Safety Report 9305617 (Version 6)
Quarter: 2013Q4

REPORT INFORMATION
  Report Type: Spontaneous
  Country: FR (occurrence: FR)
  Receive Date: 20130523
  Receipt Date: 20131003
  Transmission Date: 20140711
  Serious: Yes (Other)
  Sender: FDA-Public Use
  Company Number: FR-TEVA-406212ISR

PATIENT
  Age: 43 Year
  Sex: Female
  Weight: 75 kg

DRUGS (3)
  1. FEMSEPT EVO 50 MG / 7 MG / 24H [Suspect]
     Indication: PRIMARY HYPOGONADISM
     Dosage: 1 PATCH FOR 7 DAYS, A HALF PATCH FOR 5 DAYS.
     Route: 062
     Dates: start: 201201, end: 20130322
  2. FEMSEPT EVO 50 MG / 7 MG / 24H [Suspect]
     Dosage: HALF PATCH
     Route: 062
     Dates: start: 201204
  3. PARACETAMOL [Concomitant]

REACTIONS (6)
  - Delirium [Unknown]
  - Vaginal haemorrhage [Recovered/Resolved]
  - Migraine [Unknown]
  - Hot flush [Unknown]
  - Breast pain [Recovered/Resolved]
  - Intentional drug misuse [Unknown]
